FAERS Safety Report 23246086 (Version 1)
Quarter: 2023Q4

REPORT INFORMATION
  Report Type: Spontaneous
  Country: EC (occurrence: EC)
  Receive Date: 20231130
  Receipt Date: 20231130
  Transmission Date: 20240110
  Serious: Yes (Life-Threatening)
  Sender: FDA-Public Use
  Company Number: EC-FreseniusKabi-FK202319008

PATIENT
  Age: 25 Year
  Sex: Female
  Weight: 52.8 kg

DRUGS (7)
  1. PROPOFOL [Suspect]
     Active Substance: PROPOFOL
     Indication: General anaesthesia
     Dosage: 3 MICROGRAM/ML
     Route: 042
     Dates: end: 20231106
  2. CEFAZOLIN [Concomitant]
     Active Substance: CEFAZOLIN
     Indication: Antibiotic therapy
     Dates: start: 20231106
  3. ACETAMINOPHEN [Concomitant]
     Active Substance: ACETAMINOPHEN
     Indication: Antibiotic therapy
     Dates: start: 20231106
  4. METAMIZOLE [Concomitant]
     Active Substance: METAMIZOLE
     Indication: Antibiotic therapy
     Dates: start: 20231106
  5. KETOROLAC [Concomitant]
     Active Substance: KETOROLAC TROMETHAMINE
     Indication: Antibiotic therapy
     Dates: start: 20231106
  6. DEXAMETHASONE [Concomitant]
     Active Substance: DEXAMETHASONE
     Indication: Antibiotic therapy
     Dates: start: 20231106
  7. Dexmedetomidine pump [Concomitant]
     Indication: Antibiotic therapy
     Dates: start: 20231106

REACTIONS (1)
  - Septic shock [Recovered/Resolved]

NARRATIVE: CASE EVENT DATE: 20231106
